FAERS Safety Report 11337037 (Version 1)
Quarter: 2015Q3

REPORT INFORMATION
  Report Type: Spontaneous
  Country: US (occurrence: US)
  Receive Date: 20150804
  Receipt Date: 20150804
  Transmission Date: 20151125
  Serious: Yes (Other)
  Sender: FDA-Public Use
  Company Number: US-PRINSTON PHARMACEUTICAL INC.-2014PAC00030

PATIENT
  Sex: Male
  Weight: 112.47 kg

DRUGS (20)
  1. LOSARTAN POTASSIUM. [Suspect]
     Active Substance: LOSARTAN POTASSIUM
     Indication: HYPERTENSION
     Dosage: 100 MG, 1X/DAY
     Route: 048
  2. ALLOPURINOL. [Concomitant]
     Active Substance: ALLOPURINOL
     Dosage: 300 MG, UNK
  3. SYMBICORT [Concomitant]
     Active Substance: BUDESONIDE\FORMOTEROL FUMARATE DIHYDRATE
     Dosage: UNK, 2X/DAY
  4. TYLENOL [Concomitant]
     Active Substance: ACETAMINOPHEN
     Dosage: UNK, AS NEEDED
  5. EUFLEXXA INJECTIONS [Concomitant]
     Dosage: UNK, 2X/YEAR
     Dates: start: 2008
  6. SPIRIVA [Concomitant]
     Active Substance: TIOTROPIUM BROMIDE MONOHYDRATE
     Dosage: 30 MG, 1X/DAY
  7. HYDROCODONE [Concomitant]
     Active Substance: HYDROCODONE
     Dosage: UNK, AS NEEDED
  8. METOPROLOL [Concomitant]
     Active Substance: METOPROLOL
     Dosage: 20 UNK, UNK
  9. VITAMIN B [Concomitant]
     Active Substance: VITAMIN B
  10. FENOFIBRATE. [Concomitant]
     Active Substance: FENOFIBRATE
     Dosage: 120 MG, UNK
  11. LUTEIN [Concomitant]
     Active Substance: LUTEIN
  12. GENERIC FOR PLAVIX [Concomitant]
     Dosage: 35 MG, 1X/DAY
  13. COMBIVENT [Concomitant]
     Active Substance: ALBUTEROL SULFATE\IPRATROPIUM BROMIDE
     Dosage: UNK, AS NEEDED
  14. MULTIVITAMIN [Concomitant]
     Active Substance: VITAMINS
  15. ISOSORBIDE. [Concomitant]
     Active Substance: ISOSORBIDE
     Dosage: 30 MG, 1X/DAY
  16. FIBER PILLLS [Concomitant]
  17. ALBUTEROL SULFATE. [Concomitant]
     Active Substance: ALBUTEROL SULFATE
     Dosage: UNK, AS NEEDED
     Route: 055
  18. ATORVASTATIN [Concomitant]
     Active Substance: ATORVASTATIN
     Dosage: 40 MG, 1X/DAY
  19. TRIAMTERENE. [Concomitant]
     Active Substance: TRIAMTERENE
     Dosage: 37.5 MG, UNK
  20. FISH OIL [Concomitant]
     Active Substance: FISH OIL
     Dosage: 2000 MG, UNK

REACTIONS (3)
  - Dyspnoea [Not Recovered/Not Resolved]
  - Sneezing [Not Recovered/Not Resolved]
  - Cough [Not Recovered/Not Resolved]

NARRATIVE: CASE EVENT DATE: 2014
